FAERS Safety Report 23840375 (Version 1)
Quarter: 2024Q2

REPORT INFORMATION
  Report Type: Spontaneous
  Country: GB (occurrence: GB)
  Receive Date: 20240510
  Receipt Date: 20240510
  Transmission Date: 20240715
  Serious: Yes (Other)
  Sender: FDA-Public Use
  Company Number: None

PATIENT
  Age: 53 Year

DRUGS (2)
  1. PACLITAXEL [Suspect]
     Active Substance: PACLITAXEL
     Dosage: DOSE 66MG IN 111ML GIVEN CYCLE 5, 6 MG/ML , PL 08828/0186
     Route: 065
     Dates: start: 20240308
  2. SODIUM CHLORIDE [Concomitant]
     Active Substance: SODIUM CHLORIDE
     Dates: start: 20240308

REACTIONS (1)
  - Hypersensitivity [Unknown]
